FAERS Safety Report 7862092-7 (Version None)
Quarter: 2011Q4

REPORT INFORMATION
  Report Type: 
  Country: None (occurrence: None)
  Receive Date: 20111027
  Receipt Date: 20111016
  Transmission Date: 20120403
  Serious: Yes (Other)
  Sender: FDA-Public Use
  Company Number: BR-ALLERGAN-1113638US

PATIENT
  Age: 65 Year
  Sex: Male
  Weight: 71 kg

DRUGS (2)
  1. ZYPRED [Suspect]
     Indication: CATARACT OPERATION
     Dosage: 1 GTT, Q3HR
     Dates: start: 20110618, end: 20110628
  2. ACULAR LS [Concomitant]

REACTIONS (2)
  - CORNEAL OPACITY [None]
  - CORNEAL TRANSPLANT [None]
